FAERS Safety Report 7640345-5 (Version None)
Quarter: 2011Q3

REPORT INFORMATION
  Report Type: 
  Country: None (occurrence: None)
  Receive Date: 20110728
  Receipt Date: 20110215
  Transmission Date: 20111222
  Serious: No
  Sender: FDA-Public Use
  Company Number: US-BAYER-2011-015068

PATIENT
  Age: 29 Year
  Sex: Female

DRUGS (2)
  1. YAZ [Suspect]
     Indication: CONTRACEPTION
     Dosage: UNK
  2. CONTRACEPTIVES NOS [Concomitant]
     Indication: CONTRACEPTION
     Dosage: UNK

REACTIONS (3)
  - INFLUENZA [None]
  - NAUSEA [None]
  - VOMITING [None]
